FAERS Safety Report 17513428 (Version 2)
Quarter: 2020Q2

REPORT INFORMATION
  Report Type: Report from Study
  Country: CA (occurrence: CA)
  Receive Date: 20200306
  Receipt Date: 20200420
  Transmission Date: 20200713
  Serious: Yes (Hospitalization)
  Sender: FDA-Public Use
  Company Number: CA-BIOGEN-2020BI00844567

PATIENT
  Age: 5 Month
  Sex: Male

DRUGS (4)
  1. CHOLECALCIFEROL [Concomitant]
     Active Substance: CHOLECALCIFEROL
     Indication: PRODUCT USED FOR UNKNOWN INDICATION
     Route: 048
  2. SPINRAZA [Suspect]
     Active Substance: NUSINERSEN
     Dosage: 12 MILLIGRAM/MILLILITER?DAYS 0, 14, 28, 58, THEN EVERY 4 MONTHS THEREAFTER
     Route: 037
     Dates: start: 20200204
  3. SPINRAZA [Suspect]
     Active Substance: NUSINERSEN
     Indication: SPINAL MUSCULAR ATROPHY
     Dosage: 12 MILLIGRAM/MILLILITER?DAYS 0, 14, 28, 58, THEN EVERY 4 MONTHS THEREAFTER
     Route: 037
     Dates: start: 20200103, end: 20200116
  4. PALIVIZUMAB [Concomitant]
     Active Substance: PALIVIZUMAB
     Indication: PROPHYLAXIS
     Dosage: 29-FEB-2020 AND 28-MAR-2020
     Route: 065
     Dates: start: 20200201

REACTIONS (5)
  - Pneumonia influenzal [Unknown]
  - Bacterial disease carrier [Unknown]
  - Human bocavirus infection [Unknown]
  - Respiratory distress [Recovered/Resolved]
  - Oxygen saturation decreased [Recovered/Resolved]

NARRATIVE: CASE EVENT DATE: 20200130
